FAERS Safety Report 17403288 (Version 6)
Quarter: 2021Q1

REPORT INFORMATION
  Report Type: Report from Study
  Country: US (occurrence: US)
  Receive Date: 20200211
  Receipt Date: 20210213
  Transmission Date: 20210419
  Serious: Yes (Hospitalization)
  Sender: FDA-Public Use
  Company Number: NVSC2020US034392

PATIENT
  Age: 75 Year
  Sex: Female

DRUGS (1)
  1. ENTRESTO [Suspect]
     Active Substance: SACUBITRIL\VALSARTAN
     Indication: CARDIAC FAILURE
     Dosage: 50 MG, BID (24/26MG)
     Route: 048
     Dates: start: 201912

REACTIONS (6)
  - Asthenia [Unknown]
  - Muscular weakness [Not Recovered/Not Resolved]
  - Cardiac disorder [Unknown]
  - Device related infection [Unknown]
  - Candida infection [Unknown]
  - Back pain [Unknown]

NARRATIVE: CASE EVENT DATE: 202001
